FAERS Safety Report 6385203-1 (Version None)
Quarter: 2009Q4

REPORT INFORMATION
  Report Type: 
  Country: None (occurrence: None)
  Receive Date: 20091002
  Receipt Date: 20081110
  Transmission Date: 20100525
  Serious: No
  Sender: FDA-Public Use
  Company Number: US-ASTRAZENECA-2002UW09515

PATIENT
  Age: 67 Year
  Sex: Female
  Weight: 68 kg

DRUGS (3)
  1. ARIMIDEX [Suspect]
     Indication: BREAST CANCER STAGE II
     Route: 048
     Dates: start: 20020101
  2. NEURONTIN [Concomitant]
  3. OSCAL WITH VITAMIN D [Concomitant]

REACTIONS (7)
  - ARTHRALGIA [None]
  - ARTHRITIS [None]
  - BONE PAIN [None]
  - EYE SWELLING [None]
  - FATIGUE [None]
  - HERPES ZOSTER [None]
  - JOINT STIFFNESS [None]
